FAERS Safety Report 7979340-5 (Version None)
Quarter: 2011Q4

REPORT INFORMATION
  Report Type: 
  Country: None (occurrence: None)
  Receive Date: 20111214
  Receipt Date: 20111205
  Transmission Date: 20120403
  Serious: Yes (Death)
  Sender: FDA-Public Use
  Company Number: JP-GENZYME-THYM-1002870

PATIENT
  Sex: Male
  Weight: 63 kg

DRUGS (67)
  1. CYCLOSPORINE [Concomitant]
     Dosage: UNK
     Dates: start: 20090212, end: 20090213
  2. HYDROCORTISONE SODIUM SUCCINATE [Concomitant]
     Indication: PRODUCT USED FOR UNKNOWN INDICATION
     Dosage: 100 MG/DAY, UNK
     Dates: start: 20090128, end: 20090128
  3. METOCLOPRAMIDE [Concomitant]
     Indication: PRODUCT USED FOR UNKNOWN INDICATION
     Dosage: 10 MG/DAY, UNK
     Dates: start: 20090129, end: 20090129
  4. MAGNESIUM OXIDE [Concomitant]
     Indication: PRODUCT USED FOR UNKNOWN INDICATION
     Dosage: 1000 MG/DAY, UNK
     Dates: start: 20090123, end: 20090127
  5. URSODIOL [Concomitant]
     Dosage: 600 MG/DAY, UNK
     Dates: start: 20090302, end: 20090313
  6. ACETAMINOPHEN [Concomitant]
     Indication: PRODUCT USED FOR UNKNOWN INDICATION
     Dosage: 400 MG/DAY, UNK
     Dates: start: 20090206, end: 20090208
  7. FLURBIPROFEN [Concomitant]
     Indication: PRODUCT USED FOR UNKNOWN INDICATION
     Dosage: 50 MG/DAY, UNK
     Dates: start: 20090201, end: 20090201
  8. AMINO ACID PREPARATIONS FOR HEPATIC INSUFFICIENCY [Concomitant]
     Indication: PRODUCT USED FOR UNKNOWN INDICATION
     Dosage: UNK
     Dates: start: 20090207, end: 20090221
  9. PLATELETS [Concomitant]
     Indication: ACUTE MYELOID LEUKAEMIA
     Dosage: 430 U, UNK
     Dates: start: 20110123
  10. METHYLPREDNISOLONE SODIUM SUCCINATE [Concomitant]
     Dosage: UNK
     Dates: start: 20090128, end: 20090130
  11. GLYCYRRHIZIC ACID-DL-METHIONINE COMBINED DRUG [Concomitant]
     Indication: PRODUCT USED FOR UNKNOWN INDICATION
     Dosage: 100 ML, QD
     Dates: start: 20090124, end: 20090125
  12. SODIUM BICARBONATE [Concomitant]
     Indication: PRODUCT USED FOR UNKNOWN INDICATION
     Dosage: 250 ML, QD
     Dates: start: 20090125, end: 20090126
  13. METHOTREXATE [Concomitant]
     Indication: PRODUCT USED FOR UNKNOWN INDICATION
     Dosage: 17 MG/DAY, UNK
     Dates: start: 20090129, end: 20090129
  14. CHLORPROMAZINE HYDROCHLORIDE [Concomitant]
     Indication: PRODUCT USED FOR UNKNOWN INDICATION
     Dosage: 12.5 MG/DAY, UNK
     Dates: start: 20090130, end: 20090203
  15. TROPICAMIDE_PHENYLEPHRINE HYDROCHLORIDE [Concomitant]
     Indication: PRODUCT USED FOR UNKNOWN INDICATION
     Dosage: 5 ML, QD
     Dates: start: 20090131, end: 20090131
  16. FENTANYL CITRATE [Concomitant]
     Dosage: 0.1 MG/DAY, UNK
     Dates: start: 20090222, end: 20090222
  17. ITRACONAZOLE [Concomitant]
     Indication: PRODUCT USED FOR UNKNOWN INDICATION
     Dosage: 200 MG/DAY, UNK
     Dates: start: 20090123, end: 20090203
  18. URSODIOL [Concomitant]
     Dosage: 600 MG/DAY, UNK
     Dates: start: 20090222, end: 20090222
  19. URSODIOL [Concomitant]
     Dosage: UNK
     Dates: start: 20090223, end: 20090228
  20. FLURBIPROFEN [Concomitant]
     Dosage: UNK
     Dates: start: 20090201, end: 20090203
  21. FENTANYL CITRATE [Concomitant]
     Indication: PRODUCT USED FOR UNKNOWN INDICATION
     Dosage: UNK
     Dates: start: 20090202, end: 20090221
  22. POTASSIUM CANRENOATE [Concomitant]
     Indication: PRODUCT USED FOR UNKNOWN INDICATION
     Dosage: 600 MG/DAY, UNK
     Dates: start: 20090207, end: 20090216
  23. CHLORPHENIRAMINE MALEATE [Concomitant]
     Indication: PRODUCT USED FOR UNKNOWN INDICATION
     Dosage: 5 MG/DAY, UNK
     Dates: start: 20090212, end: 20090221
  24. THYMOGLOBULIN [Suspect]
     Indication: BONE MARROW CONDITIONING REGIMEN
     Dosage: 2.5 MG/KG, QD
     Route: 042
     Dates: start: 20090123, end: 20090126
  25. MELPHALAN HYDROCHLORIDE [Concomitant]
     Indication: PRODUCT USED FOR UNKNOWN INDICATION
     Dosage: 120 MG, QD
     Dates: start: 20090125, end: 20090126
  26. METHOTREXATE [Concomitant]
     Dosage: 12 MG/DAY, UNK
     Dates: start: 20090131, end: 20090131
  27. METHOTREXATE [Concomitant]
     Dosage: 12 MG/DAY, UNK
     Dates: start: 20090203, end: 20090203
  28. ITRACONAZOLE [Concomitant]
     Dosage: UNK
     Dates: start: 20090223, end: 20090313
  29. ITRACONAZOLE [Concomitant]
     Dosage: 200 MG/DAY, UNK
     Dates: start: 20090302, end: 20090313
  30. DEXCHLORPHENIRAMINE MALEATE [Concomitant]
     Indication: PRODUCT USED FOR UNKNOWN INDICATION
     Dosage: 2 MG/DAY, UNK
     Dates: start: 20090126, end: 20090204
  31. DEXCHLORPHENIRAMINE MALEATE [Concomitant]
     Dosage: 2 MG/DAY, UNK
     Dates: start: 20090209, end: 20090209
  32. CEFEPIME [Concomitant]
     Indication: PRODUCT USED FOR UNKNOWN INDICATION
     Dosage: UNK
     Dates: start: 20090201, end: 20090204
  33. ANTITHROMBIN III [Concomitant]
     Indication: PRODUCT USED FOR UNKNOWN INDICATION
     Dosage: 1500 IU, QD
     Dates: start: 20090210, end: 20090212
  34. CARPERITIDE [Concomitant]
     Indication: PRODUCT USED FOR UNKNOWN INDICATION
     Dosage: UNK
     Dates: start: 20090212, end: 20090216
  35. LANSOPRAZOLE [Concomitant]
     Dosage: 30 MG/DAY, UNK
     Dates: start: 20090214, end: 20090221
  36. CYCLOSPORINE [Concomitant]
     Indication: PRODUCT USED FOR UNKNOWN INDICATION
     Dosage: UNK
     Dates: start: 20090127, end: 20090210
  37. FILGRASTIM [Concomitant]
     Dosage: 75 MCG/DAY, UNK
     Dates: start: 20090129, end: 20090221
  38. ITRACONAZOLE [Concomitant]
     Dosage: 200 MG/DAY, UNK
     Dates: start: 20090204, end: 20090221
  39. LOXOPROFEN SODIUM [Concomitant]
     Indication: PRODUCT USED FOR UNKNOWN INDICATION
     Dosage: 60 MG/DAY, UNK
     Dates: start: 20090123, end: 20090201
  40. VANCOMYCIN HCL [Concomitant]
     Indication: PRODUCT USED FOR UNKNOWN INDICATION
     Dosage: 2 G, QD
     Dates: start: 20090202, end: 20090203
  41. LANSOPRAZOLE [Concomitant]
     Indication: PRODUCT USED FOR UNKNOWN INDICATION
     Dosage: 15 MG/DAY, UNK
     Dates: start: 20090123, end: 20090203
  42. CIPROFLOXACIN HYDROCHLORIDE [Concomitant]
     Indication: PRODUCT USED FOR UNKNOWN INDICATION
     Dosage: 600 MG/DAY, UNK
     Dates: start: 20090123, end: 20090203
  43. URSODIOL [Concomitant]
     Indication: PRODUCT USED FOR UNKNOWN INDICATION
     Dosage: 600 MG/DAY, UNK
     Dates: start: 20090123, end: 20090217
  44. FRADIOMYCIN SULFATE-BETAMETHASONE SODIUM PHOSPHATE [Concomitant]
     Indication: PRODUCT USED FOR UNKNOWN INDICATION
     Dosage: 5 ML, QD
     Dates: start: 20090131, end: 20090131
  45. VANCOMYCIN HCL [Concomitant]
     Dosage: UNK
     Dates: start: 20090204, end: 20090221
  46. LANSOPRAZOLE [Concomitant]
     Dosage: 30 MG/DAY, UNK
     Dates: start: 20090213, end: 20090213
  47. HYDROXYZINE HYDROCHLORIDE [Concomitant]
     Indication: PRODUCT USED FOR UNKNOWN INDICATION
     Dosage: 25 MG, QD
     Dates: start: 20090128, end: 20090128
  48. FUROSEMIDE [Concomitant]
     Dosage: 120 MG, QD
     Dates: start: 20090221, end: 20090221
  49. FILGRASTIM [Concomitant]
     Indication: PRODUCT USED FOR UNKNOWN INDICATION
     Dosage: 300 MCG/DAY, UNK
     Dates: start: 20090129, end: 20090221
  50. ACYCLOVIR [Concomitant]
     Indication: PRODUCT USED FOR UNKNOWN INDICATION
     Dosage: 1000 MG, QD
     Dates: start: 20090123, end: 20090203
  51. ACYCLOVIR [Concomitant]
     Dosage: UNK
     Dates: start: 20090203, end: 20090211
  52. CYCLOPENTOLATE HYDROCHLORIDE [Concomitant]
     Indication: PRODUCT USED FOR UNKNOWN INDICATION
     Dosage: 10 ML, QD
     Dates: start: 20090205, end: 20090205
  53. FAMOTIDINE [Concomitant]
     Indication: PRODUCT USED FOR UNKNOWN INDICATION
     Dosage: 20 MG/DAY, UNK
     Dates: start: 20090203, end: 20090212
  54. DOPAMINE HYDROCHLORIDE [Concomitant]
     Indication: PRODUCT USED FOR UNKNOWN INDICATION
     Dosage: UNK
     Dates: start: 20090209, end: 20090221
  55. CARPERITIDE [Concomitant]
     Dosage: UNK
     Dates: start: 20090214, end: 20090221
  56. FLUDARABINE PHOSPHATE [Concomitant]
     Indication: PRODUCT USED FOR UNKNOWN INDICATION
     Dosage: 50 MG, QD
     Dates: start: 20090123, end: 20090126
  57. RED BLOOD CELLS [Concomitant]
     Indication: ACUTE MYELOID LEUKAEMIA
     Dosage: 36 U, UNK
     Dates: start: 20110124
  58. GRANISETRON HCL [Concomitant]
     Indication: PRODUCT USED FOR UNKNOWN INDICATION
     Dosage: UNK
     Dates: start: 20090123, end: 20090126
  59. METHYLPREDNISOLONE SODIUM SUCCINATE [Concomitant]
     Indication: PRODUCT USED FOR UNKNOWN INDICATION
     Dosage: UNK
     Dates: start: 20090123, end: 20090127
  60. GLYCYRRHIZIC ACID-DL-METHIONINE COMBINED DRUG [Concomitant]
     Dosage: 100 ML, UNK
     Dates: start: 20090126, end: 20090127
  61. GLYCYRRHIZIC ACID-DL-METHIONINE COMBINED DRUG [Concomitant]
     Dosage: UNK
     Dates: start: 20090219, end: 20090221
  62. FUROSEMIDE [Concomitant]
     Indication: PRODUCT USED FOR UNKNOWN INDICATION
     Dosage: 20 MG, QD
     Dates: start: 20090128, end: 20090128
  63. FILGRASTIM [Concomitant]
     Dosage: 150 MCG/DAY, UNK
     Dates: start: 20090129, end: 20090221
  64. ITRACONAZOLE [Concomitant]
     Dosage: 200 MG/DAY, UNK
     Dates: start: 20090222, end: 20090222
  65. CLONAZEPAM [Concomitant]
     Indication: PRODUCT USED FOR UNKNOWN INDICATION
     Dosage: UNK
     Dates: start: 20090126, end: 20090206
  66. DEXCHLORPHENIRAMINE MALEATE [Concomitant]
     Dosage: 2 MG/DAY, UNK
     Dates: start: 20090208, end: 20090217
  67. FENTANYL CITRATE [Concomitant]
     Dosage: 0.2 MG/DAY, UNK
     Dates: start: 20090203, end: 20090203

REACTIONS (1)
  - VENOOCCLUSIVE LIVER DISEASE [None]
